FAERS Safety Report 16025993 (Version 1)
Quarter: 2019Q1

REPORT INFORMATION
  Report Type: Report from Study
  Country: None (occurrence: US)
  Receive Date: 20190302
  Receipt Date: 20190302
  Transmission Date: 20190418
  Serious: Yes (Other)
  Sender: FDA-Public Use
  Company Number: US-ABBVIE-19S-163-2654720-00

PATIENT
  Sex: Female

DRUGS (2)
  1. PREMARIN [Concomitant]
     Active Substance: ESTROGENS, CONJUGATED
     Indication: PRODUCT USED FOR UNKNOWN INDICATION
  2. SYNTHROID [Suspect]
     Active Substance: LEVOTHYROXINE SODIUM
     Indication: PRODUCT USED FOR UNKNOWN INDICATION
     Route: 048
     Dates: start: 1980

REACTIONS (14)
  - Rhinoplasty [Unknown]
  - Artificial menopause [Unknown]
  - Irlen syndrome [Unknown]
  - Hypothyroidism [Unknown]
  - Depression [Unknown]
  - Rheumatoid arthritis [Unknown]
  - Pelvic operation [Unknown]
  - Polyarthritis [Unknown]
  - Hysterectomy [Unknown]
  - Food interaction [Unknown]
  - Unevaluable event [Unknown]
  - Intestinal obstruction [Unknown]
  - Rhinoplasty [Unknown]
  - Osteoarthritis [Unknown]

NARRATIVE: CASE EVENT DATE: 1982
